FAERS Safety Report 9161615 (Version 3)
Quarter: 2013Q2

REPORT INFORMATION
  Report Type: Report from Study
  Country: US (occurrence: US)
  Receive Date: 20130313
  Receipt Date: 20130626
  Transmission Date: 20140414
  Serious: Yes (Hospitalization, Other)
  Sender: FDA-Public Use
  Company Number: US-ELI_LILLY_AND_COMPANY-US201303001801

PATIENT
  Age: 58 Year
  Sex: Female

DRUGS (14)
  1. TERIPARATIDE [Suspect]
     Indication: OSTEOPOROSIS
     Dosage: 20 UG, QD
     Route: 058
     Dates: start: 20111003
  2. TERIPARATIDE [Suspect]
     Dosage: 20 UG, QD
     Route: 058
     Dates: start: 20111003
  3. PREDNISONE [Concomitant]
     Dosage: 17.5 MG, QOD
  4. PREDNISONE [Concomitant]
     Dosage: 15 MG, QOD
  5. LOSARTAN [Concomitant]
     Dosage: 25 MG, QD
  6. SERTRALIN [Concomitant]
     Dosage: 25 MG, QD
  7. AZATHIOPRINE [Concomitant]
     Dosage: 150 MG, QD
  8. LUMIGAN [Concomitant]
     Indication: GLAUCOMA
     Dosage: UNK
  9. TRAMADOL [Concomitant]
     Indication: SCIATICA
     Dosage: UNK
  10. CITRACAL + D [Concomitant]
     Dosage: 1200 MG, QD
  11. VITAMIN B [Concomitant]
     Dosage: UNK, QD
  12. MAGNESIUM [Concomitant]
     Dosage: 400 MG, TID
  13. MELATONIN [Concomitant]
     Indication: INSOMNIA
     Dosage: 3 MG, UNK
  14. LISINOPRIL [Concomitant]

REACTIONS (8)
  - Appendicitis perforated [Recovered/Resolved]
  - Peritonitis [Recovered/Resolved]
  - Sepsis syndrome [Recovered/Resolved]
  - Contusion [Unknown]
  - Tenderness [Unknown]
  - Pruritus [Unknown]
  - Cataract [Unknown]
  - Weight increased [Unknown]
